FAERS Safety Report 6672669-2 (Version None)
Quarter: 2010Q2

REPORT INFORMATION
  Report Type: 
  Country: None (occurrence: None)
  Receive Date: 20100406
  Receipt Date: 20100322
  Transmission Date: 20101027
  Serious: Yes (Other)
  Sender: FDA-Public Use
  Company Number: 20100127

PATIENT
  Age: 31 Year
  Sex: Female

DRUGS (10)
  1. ATROPINE SULFATE [Suspect]
     Indication: BRADYCARDIA
     Dosage: 0.4 MG X 2 DOSES, INTRAVENOUS
     Route: 042
  2. PHENYLEPHRINE HCL [Suspect]
     Indication: HYPOTENSION
     Dosage: INTRAVENOUS DRIP
     Route: 041
  3. EPHEDRINE [Suspect]
     Indication: HYPOTENSION
     Dosage: TOTAL 50 MG, INTRAVENOUS
     Route: 042
  4. SUXAMETHONIUM CHLORIDE (SUCCINYLCHOLINE) [Concomitant]
  5. SEVOFLURANE [Concomitant]
  6. PROPOFOL [Concomitant]
  7. FENTANYL [Concomitant]
  8. MORPHINE [Concomitant]
  9. NITROUS OXIDE [Concomitant]
  10. BUPIVACAINE HCL [Concomitant]

REACTIONS (12)
  - ANXIETY [None]
  - BLINDNESS [None]
  - BRADYCARDIA [None]
  - CHEST DISCOMFORT [None]
  - EJECTION FRACTION DECREASED [None]
  - ELECTROCARDIOGRAM T WAVE INVERSION [None]
  - HYPOTENSION [None]
  - LEFT VENTRICULAR DYSFUNCTION [None]
  - SINUS TACHYCARDIA [None]
  - STRESS CARDIOMYOPATHY [None]
  - SYNCOPE [None]
  - TROPONIN I INCREASED [None]
